FAERS Safety Report 16912614 (Version 1)
Quarter: 2019Q4

REPORT INFORMATION
  Report Type: Spontaneous
  Country: US (occurrence: US)
  Receive Date: 20191014
  Receipt Date: 20191014
  Transmission Date: 20200122
  Serious: No
  Sender: FDA-Public Use
  Company Number: US-ASTRAZENECA-2019SF44891

PATIENT
  Age: 58 Year
  Sex: Female

DRUGS (1)
  1. PRILOSEC OTC [Suspect]
     Active Substance: OMEPRAZOLE MAGNESIUM
     Route: 048
     Dates: end: 20190914

REACTIONS (5)
  - Hypersensitivity [Recovered/Resolved]
  - Abdominal distension [Recovered/Resolved]
  - Feeling abnormal [Recovered/Resolved]
  - Diarrhoea [Recovered/Resolved]
  - Abdominal pain upper [Recovered/Resolved]
